FAERS Safety Report 18360791 (Version 4)
Quarter: 2021Q2

REPORT INFORMATION
  Report Type: Report from Study
  Country: US (occurrence: US)
  Receive Date: 20201008
  Receipt Date: 20210525
  Transmission Date: 20210717
  Serious: No
  Sender: FDA-Public Use
  Company Number: NVSC2020US271946

PATIENT
  Sex: Female

DRUGS (4)
  1. PIQRAY [Suspect]
     Active Substance: ALPELISIB
     Dosage: 150 MG, QW4 (TUESDAY, THURSDAY, SATURDAY AND SUNDAY)
     Route: 048
  2. PIQRAY [Suspect]
     Active Substance: ALPELISIB
     Indication: PRODUCT USED FOR UNKNOWN INDICATION
     Dosage: 1 DF, QD
     Route: 048
  3. PIQRAY [Suspect]
     Active Substance: ALPELISIB
     Dosage: 300 MG, TIW (MONDAY, WEDNESDAY, FRIDAY)
     Route: 048
  4. PIQRAY [Suspect]
     Active Substance: ALPELISIB
     Dosage: 250 MG, TIW,  ((MONDAY, WEDNESDAY, FRIDAY)
     Route: 065

REACTIONS (3)
  - Hyperglycaemia [Not Recovered/Not Resolved]
  - Chills [Unknown]
  - Blood creatinine increased [Unknown]
